FAERS Safety Report 25250339 (Version 1)
Quarter: 2025Q2

REPORT INFORMATION
  Report Type: Spontaneous
  Country: US (occurrence: US)
  Receive Date: 20250429
  Receipt Date: 20250429
  Transmission Date: 20250716
  Serious: Yes (Other)
  Sender: Unknown Manufacturer
  Company Number: US-MELINTA THERAPEUTICS, LLC-US-MLNT-24-00155

PATIENT

DRUGS (4)
  1. KIMYRSA [Suspect]
     Active Substance: ORITAVANCIN DIPHOSPHATE
     Indication: Cellulitis
     Route: 041
     Dates: start: 20240210, end: 20240210
  2. KCL [Concomitant]
     Active Substance: POTASSIUM CHLORIDE
     Indication: Product used for unknown indication
  3. OMEPRAZOLE [Concomitant]
     Active Substance: OMEPRAZOLE
     Indication: Product used for unknown indication
  4. DOXYCYCLINE [Concomitant]
     Active Substance: DOXYCYCLINE
     Indication: Product used for unknown indication

REACTIONS (6)
  - Hypersensitivity [Unknown]
  - Erythema [Unknown]
  - Pruritus [Unknown]
  - Dizziness [Unknown]
  - Chills [Unknown]
  - Tremor [Unknown]

NARRATIVE: CASE EVENT DATE: 20240210
